FAERS Safety Report 6741812-9 (Version None)
Quarter: 2010Q2

REPORT INFORMATION
  Report Type: 
  Country: None (occurrence: None)
  Receive Date: 20100526
  Receipt Date: 20100517
  Transmission Date: 20101027
  Serious: Yes (Hospitalization)
  Sender: FDA-Public Use
  Company Number: US-ROCHE-704071

PATIENT
  Sex: Female
  Weight: 88.4 kg

DRUGS (19)
  1. PEGASYS [Suspect]
     Indication: HEPATITIS C
     Route: 058
     Dates: start: 20080911, end: 20090315
  2. PEGASYS [Suspect]
     Route: 058
     Dates: start: 20090331, end: 20090611
  3. PEGASYS [Suspect]
     Route: 058
     Dates: start: 20090625, end: 20090728
  4. PEGASYS [Suspect]
     Route: 058
     Dates: start: 20090730, end: 20090820
  5. COPEGUS [Suspect]
     Indication: HEPATITIS C
     Dosage: EXPIRY DATE: 4 APRIL  2009
     Route: 048
     Dates: start: 20080911, end: 20090315
  6. COPEGUS [Suspect]
     Dosage: EXPIRY DATE: SEPTEMBR 2011
     Route: 048
     Dates: start: 20090303, end: 20090608
  7. COPEGUS [Suspect]
     Route: 048
     Dates: start: 20090623, end: 20090820
  8. PF-00868554 (HCV POLYMERASE INHIBITOR) [Suspect]
     Indication: HEPATITIS C
     Route: 048
     Dates: start: 20080911, end: 20081009
  9. LORTAB [Concomitant]
     Dates: start: 19990101
  10. THEOPHYLLINE [Concomitant]
     Dates: start: 20030101
  11. COMBIVENT [Concomitant]
     Dates: start: 19920101
  12. ADVAIR DISKUS 100/50 [Concomitant]
     Dates: start: 20030101
  13. PROMETHAZINE [Concomitant]
     Dates: start: 20080903
  14. BENADRYL [Concomitant]
     Dates: start: 20080918
  15. MAGNESIUM CITRATE [Concomitant]
     Dates: start: 20080923
  16. PREDNISONE TAB [Concomitant]
     Route: 048
     Dates: start: 20080910, end: 20080912
  17. PREDNISONE TAB [Concomitant]
     Route: 048
     Dates: start: 20080913, end: 20080916
  18. AZITHROMYCIN [Concomitant]
     Route: 048
     Dates: start: 20080910, end: 20080910
  19. AZITHROMYCIN [Concomitant]
     Route: 048
     Dates: start: 20080911, end: 20080914

REACTIONS (4)
  - CHRONIC OBSTRUCTIVE PULMONARY DISEASE [None]
  - CONSTIPATION [None]
  - NAUSEA [None]
  - PLEURISY [None]
